FAERS Safety Report 8277373-5 (Version None)
Quarter: 2012Q2

REPORT INFORMATION
  Report Type: 
  Country: None (occurrence: None)
  Receive Date: 20120412
  Receipt Date: 20120404
  Transmission Date: 20120825
  Serious: Yes (Other)
  Sender: FDA-Public Use
  Company Number: SE-BAYER-2012-032520

PATIENT
  Sex: Female

DRUGS (1)
  1. ESTRADIOL VALERATE/DIENOGEST [Suspect]
     Dosage: UNK
     Dates: start: 20120101

REACTIONS (5)
  - PREGNANCY ON ORAL CONTRACEPTIVE [None]
  - PREGNANCY [None]
  - ABORTION SPONTANEOUS [None]
  - VAGINAL HAEMORRHAGE [None]
  - MATERNAL EXPOSURE DURING PREGNANCY [None]
